FAERS Safety Report 14713697 (Version 1)
Quarter: 2018Q2

REPORT INFORMATION
  Report Type: Spontaneous
  Country: JP (occurrence: JP)
  Receive Date: 20180404
  Receipt Date: 20180404
  Transmission Date: 20180711
  Serious: Yes (Hospitalization, Other)
  Sender: FDA-Public Use
  Company Number: JP-BAYER-2017-217169

PATIENT
  Age: 62 Year
  Sex: Female
  Weight: 69.4 kg

DRUGS (2)
  1. STIVARGA [Suspect]
     Active Substance: REGORAFENIB
     Indication: COLON CANCER
     Dosage: DAILY DOSE 3 DF
     Route: 048
     Dates: start: 20171024, end: 20171031
  2. STIVARGA [Suspect]
     Active Substance: REGORAFENIB
     Indication: COLON CANCER
     Dosage: DAILY DOSE 4 DF
     Route: 048
     Dates: start: 20171003, end: 20171010

REACTIONS (13)
  - Altered state of consciousness [None]
  - Neutrophil count decreased [Recovered/Resolved]
  - Aspartate aminotransferase increased [None]
  - Renal impairment [Recovering/Resolving]
  - Palmar-plantar erythrodysaesthesia syndrome [Recovered/Resolved]
  - Hepatic function abnormal [None]
  - Pyrexia [Recovering/Resolving]
  - Dehydration [None]
  - Alanine aminotransferase increased [None]
  - Febrile neutropenia [Recovered/Resolved]
  - Rash maculo-papular [Recovering/Resolving]
  - Decreased appetite [Recovered/Resolved]
  - Metastases to lung [None]

NARRATIVE: CASE EVENT DATE: 20171007
